FAERS Safety Report 8545297-1 (Version None)
Quarter: 2012Q3

REPORT INFORMATION
  Report Type: 
  Country: None (occurrence: None)
  Receive Date: 20120727
  Receipt Date: 20120725
  Transmission Date: 20120928
  Serious: Yes (Life-Threatening, Hospitalization, Other)
  Sender: FDA-Public Use
  Company Number: GB-B.I. PHARMACEUTICALS,INC./RIDGEFIELD-2012-UK-00980UK

PATIENT
  Age: 72 Year
  Sex: Female

DRUGS (7)
  1. LOSARTAN POTASSIUM [Concomitant]
  2. DIGOXIN [Concomitant]
  3. PRADAXA [Suspect]
     Route: 048
  4. FUROSEMIDE [Concomitant]
  5. SYMBICORT [Concomitant]
  6. ALBUTEROL SULATE [Concomitant]
  7. SALINE MIXTURE [Concomitant]

REACTIONS (1)
  - PULMONARY EMBOLISM [None]
